FAERS Safety Report 12199625 (Version 1)
Quarter: 2016Q1

REPORT INFORMATION
  Report Type: Spontaneous
  Country: GB (occurrence: GB)
  Receive Date: 20160322
  Receipt Date: 20160322
  Transmission Date: 20160526
  Serious: Yes (Other)
  Sender: FDA-Public Use
  Company Number: GB-PFIZER INC-2016144985

PATIENT
  Sex: Female

DRUGS (2)
  1. LYRICA [Suspect]
     Active Substance: PREGABALIN
     Dosage: UNK
  2. GABAPENTIN. [Suspect]
     Active Substance: GABAPENTIN
     Dosage: UNK

REACTIONS (7)
  - Grip strength decreased [Unknown]
  - Fine motor skill dysfunction [Unknown]
  - Myalgia [Unknown]
  - Rash pruritic [Unknown]
  - Drug hypersensitivity [Unknown]
  - Rash [Unknown]
  - Rash papular [Unknown]
